FAERS Safety Report 4721767-9 (Version None)
Quarter: 2005Q3

REPORT INFORMATION
  Report Type: 
  Country: None (occurrence: None)
  Receive Date: 20050721
  Receipt Date: 20050406
  Transmission Date: 20060218
  Serious: No
  Sender: FDA-Public Use
  Company Number: US-BRISTOL-MYERS SQUIBB COMPANY-12925210

PATIENT
  Sex: Female

DRUGS (2)
  1. COUMADIN [Suspect]
     Route: 048
  2. VITAMIN E [Suspect]
     Route: 048

REACTIONS (1)
  - CONTUSION [None]
